FAERS Safety Report 16409121 (Version 1)
Quarter: 2019Q2

REPORT INFORMATION
  Report Type: Report from Study
  Country: None (occurrence: NL)
  Receive Date: 20190610
  Receipt Date: 20190610
  Transmission Date: 20190711
  Serious: Yes (Other)
  Sender: FDA-Public Use
  Company Number: NL-ABBVIE-17K-114-1964681-00

PATIENT
  Age: 75 Year
  Sex: Male
  Weight: 58 kg

DRUGS (11)
  1. DUODOPA [Suspect]
     Active Substance: CARBIDOPA\LEVODOPA
     Dosage: MD: 8.0, CD: 4.6, ED: 4.3, CND: 3.7
     Route: 050
  2. DUODOPA [Suspect]
     Active Substance: CARBIDOPA\LEVODOPA
     Dosage: MD 7.5 ML; CD 5.0 ML / HOUR ED 4.3 ML NIGHT PUMP CD 3.7 ML ED 4.3 ML
     Route: 050
  3. MACROGOL [Concomitant]
     Active Substance: POLYETHYLENE GLYCOLS
     Indication: ABNORMAL FAECES
  4. DUODOPA [Suspect]
     Active Substance: CARBIDOPA\LEVODOPA
     Dosage: MD: 8.0, CD: 4.8, ED: 4.3
     Route: 050
  5. DUODOPA [Suspect]
     Active Substance: CARBIDOPA\LEVODOPA
     Dosage: CD 4.6, EXTRA DOSE 5-6 TIMES A DAY
     Route: 050
  6. DUODOPA [Suspect]
     Active Substance: CARBIDOPA\LEVODOPA
     Indication: PARKINSON^S DISEASE
     Dosage: MORNING DOSE: 9.2, CONTINUOUS DAY: 4.4, EXTRA DOSE: 4.3, CND: 3.7
     Route: 050
     Dates: start: 20151020
  7. DUODOPA [Suspect]
     Active Substance: CARBIDOPA\LEVODOPA
     Dosage: MORNING DOSE: 8.0 CONTINUOUS DOSE: 4.4 EXTRA DOSE 4.3 NIGHT DOSE: 3.7 EXTRA NIGHT DOSE 4.3
     Route: 050
  8. NUTRIDRINK [Concomitant]
     Active Substance: CARBOHYDRATES\FATTY ACIDS\MINERALS\PROTEIN\VITAMINS
     Indication: PRODUCT USED FOR UNKNOWN INDICATION
  9. DUODOPA [Suspect]
     Active Substance: CARBIDOPA\LEVODOPA
     Dosage: DAY:MD 3.0CD 5.2 ED 5.0 NIGHT: MD 5.0 CD 3.7 ED 4.3
     Route: 050
  10. DUODOPA [Suspect]
     Active Substance: CARBIDOPA\LEVODOPA
     Dosage: MORNING DOSE: 8.0 CONTINUOUS DOSE: 4.6 EXTRA DOSE 4.3 NIGHT DOSE: 3.7
     Route: 050
  11. MELATONIN [Concomitant]
     Active Substance: MELATONIN
     Indication: SLEEP DISORDER
     Dosage: EVERY NIGHT
     Route: 048

REACTIONS (63)
  - Suspiciousness [Not Recovered/Not Resolved]
  - Muscular weakness [Not Recovered/Not Resolved]
  - Hallucination [Recovering/Resolving]
  - Product administration error [Not Recovered/Not Resolved]
  - Epilepsy [Not Recovered/Not Resolved]
  - Abnormal dreams [Not Recovered/Not Resolved]
  - Hyperkinesia [Not Recovered/Not Resolved]
  - Posture abnormal [Not Recovered/Not Resolved]
  - Photopsia [Not Recovered/Not Resolved]
  - Decreased appetite [Unknown]
  - Stoma site erythema [Not Recovered/Not Resolved]
  - Aggression [Not Recovered/Not Resolved]
  - Stress [Unknown]
  - Cognitive disorder [Not Recovered/Not Resolved]
  - Weight decreased [Unknown]
  - Stoma site induration [Not Recovered/Not Resolved]
  - Stoma site discharge [Not Recovered/Not Resolved]
  - Constipation [Recovered/Resolved]
  - Impaired self-care [Not Recovered/Not Resolved]
  - Nocturia [Not Recovered/Not Resolved]
  - Gait disturbance [Not Recovered/Not Resolved]
  - Urinary tract infection [Recovered/Resolved]
  - Polyuria [Not Recovered/Not Resolved]
  - Fibroma [Not Recovered/Not Resolved]
  - Therapeutic product effect incomplete [Not Recovered/Not Resolved]
  - Device issue [Unknown]
  - Fibroma [Recovered/Resolved]
  - Mobility decreased [Not Recovered/Not Resolved]
  - Extra dose administered [Not Recovered/Not Resolved]
  - On and off phenomenon [Not Recovered/Not Resolved]
  - Mental impairment [Not Recovered/Not Resolved]
  - Bradyphrenia [Not Recovered/Not Resolved]
  - Hypophagia [Not Recovered/Not Resolved]
  - Faeces hard [Not Recovered/Not Resolved]
  - Parkinson^s disease [Unknown]
  - Hypoaesthesia [Recovering/Resolving]
  - Neuropathy peripheral [Not Recovered/Not Resolved]
  - Catheter site dryness [Not Recovered/Not Resolved]
  - Abnormal faeces [Not Recovered/Not Resolved]
  - Diarrhoea [Not Recovered/Not Resolved]
  - Fall [Unknown]
  - Dementia [Not Recovered/Not Resolved]
  - Feeling abnormal [Not Recovered/Not Resolved]
  - Irritability [Not Recovered/Not Resolved]
  - General physical health deterioration [Not Recovered/Not Resolved]
  - Hallucination [Recovered/Resolved]
  - Muscle rigidity [Not Recovered/Not Resolved]
  - Dysstasia [Not Recovered/Not Resolved]
  - Loss of personal independence in daily activities [Not Recovered/Not Resolved]
  - Freezing phenomenon [Unknown]
  - Paraesthesia [Not Recovered/Not Resolved]
  - Pain in extremity [Recovering/Resolving]
  - Fluid intake reduced [Not Recovered/Not Resolved]
  - Fatigue [Not Recovered/Not Resolved]
  - Dyskinesia [Not Recovered/Not Resolved]
  - Vomiting [Not Recovered/Not Resolved]
  - Hypogeusia [Not Recovered/Not Resolved]
  - Emotional disorder [Not Recovered/Not Resolved]
  - Disturbance in attention [Not Recovered/Not Resolved]
  - Dysphagia [Unknown]
  - Decreased appetite [Not Recovered/Not Resolved]
  - Faecal volume decreased [Not Recovered/Not Resolved]
  - Memory impairment [Unknown]

NARRATIVE: CASE EVENT DATE: 201802
